FAERS Safety Report 5966221-1 (Version None)
Quarter: 2008Q4

REPORT INFORMATION
  Report Type: 
  Country: None (occurrence: None)
  Receive Date: 20081125
  Receipt Date: 20081117
  Transmission Date: 20090506
  Serious: Yes (Other)
  Sender: FDA-Public Use
  Company Number: US-AVENTIS-200817889US

PATIENT
  Sex: Female

DRUGS (4)
  1. LOVENOX [Suspect]
     Indication: PREGNANCY
     Route: 051
     Dates: start: 20081001
  2. LOVENOX [Suspect]
     Dosage: DOSE: UNK
     Route: 051
     Dates: end: 20081101
  3. LOVENOX [Suspect]
     Route: 051
     Dates: start: 20081001
  4. LOVENOX [Suspect]
     Dosage: DOSE: UNK
     Route: 051
     Dates: end: 20081101

REACTIONS (6)
  - ABORTION SPONTANEOUS [None]
  - DRUG EXPOSURE DURING PREGNANCY [None]
  - HEADACHE [None]
  - HYPERSENSITIVITY [None]
  - LIP SWELLING [None]
  - NAUSEA [None]
